FAERS Safety Report 16970428 (Version 1)
Quarter: 2019Q4

REPORT INFORMATION
  Report Type: Spontaneous
  Country: US (occurrence: US)
  Receive Date: 20190912
  Receipt Date: 20190912
  Transmission Date: 20200122
  Serious: Yes (Other)
  Sender: FDA-Public Use
  Company Number: None

PATIENT
  Age: 83 Year
  Sex: Male
  Weight: 78.47 kg

DRUGS (4)
  1. VIT D [Concomitant]
     Active Substance: VITAMIN D NOS
  2. GADOLINIUM [Suspect]
     Active Substance: GADOLINIUM
  3. KEPPRA [Concomitant]
     Active Substance: LEVETIRACETAM
  4. ATORVASTATIN [Concomitant]
     Active Substance: ATORVASTATIN

REACTIONS (3)
  - Sensory disturbance [None]
  - Taste disorder [None]
  - Hypoaesthesia [None]

NARRATIVE: CASE EVENT DATE: 2018
